FAERS Safety Report 9485842 (Version 17)
Quarter: 2015Q4

REPORT INFORMATION
  Report Type: Report from Study
  Country: CA (occurrence: CA)
  Receive Date: 20130829
  Receipt Date: 20151203
  Transmission Date: 20160305
  Serious: Yes (Death, Hospitalization, Other)
  Sender: FDA-Public Use
  Company Number: PHHY2010CA82575

PATIENT
  Age: 66 Year
  Sex: Female

DRUGS (6)
  1. SANDOSTATIN LAR DEPOT [Suspect]
     Active Substance: OCTREOTIDE ACETATE
     Dosage: 60 MG, QMO (EVERY 4 WEEKS)
     Route: 030
  2. SANDOSTATIN [Suspect]
     Active Substance: OCTREOTIDE ACETATE
     Indication: CARCINOID TUMOUR
     Dosage: 50 UG, ONCE/SINGLE
     Route: 058
     Dates: start: 20100804, end: 20100804
  3. SANDOSTATIN LAR DEPOT [Suspect]
     Active Substance: OCTREOTIDE ACETATE
     Dosage: 60 MG, QMO (EVERY 4 WEEKS)
     Route: 030
     Dates: end: 20151120
  4. SANDOSTATIN LAR DEPOT [Suspect]
     Active Substance: OCTREOTIDE ACETATE
     Dosage: 30 MG, QMO (EVERY 4 WEEKS)
     Route: 030
  5. SANDOSTATIN [Suspect]
     Active Substance: OCTREOTIDE ACETATE
     Indication: PAIN
     Dosage: 1 MG, BID
     Route: 058
     Dates: start: 20141105, end: 20141113
  6. SANDOSTATIN LAR DEPOT [Suspect]
     Active Substance: OCTREOTIDE ACETATE
     Indication: CARCINOID TUMOUR
     Dosage: 30 MG, QMO (EVERY 4 WEEKS)
     Route: 030
     Dates: start: 20100810

REACTIONS (23)
  - Intestinal obstruction [Unknown]
  - Inguinal hernia [Unknown]
  - Lung disorder [Unknown]
  - Ovarian enlargement [Unknown]
  - Abdominal pain [Recovering/Resolving]
  - Blood pressure increased [Unknown]
  - Oedema peripheral [Unknown]
  - Pain [Recovering/Resolving]
  - Product use issue [Unknown]
  - Urinary tract obstruction [Unknown]
  - Weight decreased [Unknown]
  - Oedema [Not Recovered/Not Resolved]
  - Blister [Unknown]
  - Blood pressure systolic increased [Unknown]
  - Flatulence [Unknown]
  - Gait disturbance [Unknown]
  - Hypokinesia [Unknown]
  - Hypothyroidism [Unknown]
  - Flushing [Unknown]
  - Injection site oedema [Unknown]
  - Asthenia [Unknown]
  - Malignant neoplasm progression [Fatal]
  - Irritable bowel syndrome [Unknown]

NARRATIVE: CASE EVENT DATE: 2014
